FAERS Safety Report 5742415-5 (Version None)
Quarter: 2008Q2

REPORT INFORMATION
  Report Type: 
  Country: None (occurrence: None)
  Receive Date: 20080514
  Receipt Date: 20080514
  Transmission Date: 20081010
  Serious: No
  Sender: FDA-Public Use
  Company Number: None

PATIENT
  Age: 42 Year
  Sex: Male

DRUGS (1)
  1. EZETIMIBE [Suspect]
     Indication: HYPERLIPIDAEMIA
     Dates: start: 20070103, end: 20070629

REACTIONS (1)
  - BLOOD CREATINE PHOSPHOKINASE INCREASED [None]
